FAERS Safety Report 10357741 (Version 1)
Quarter: 2014Q3

REPORT INFORMATION
  Report Type: Report from Study
  Country: JP (occurrence: JP)
  Receive Date: 20140801
  Receipt Date: 20140801
  Transmission Date: 20150326
  Serious: No
  Sender: FDA-Public Use
  Company Number: PHHY2013JP159221

PATIENT
  Age: 62 Year
  Sex: Male

DRUGS (5)
  1. TASIGNA [Suspect]
     Active Substance: NILOTINIB
     Dosage: 400 MG, DAILY
     Dates: start: 201207
  2. ARTIST [Concomitant]
     Active Substance: CARVEDILOL
     Dosage: UNK UKN, UNK
  3. NOVOLIN R [Concomitant]
     Active Substance: INSULIN HUMAN
     Dosage: UNK UKN, UNK
  4. BAYASPIRIN [Concomitant]
     Active Substance: ASPIRIN
     Dosage: UNK UKN, UNK
  5. PARIET [Concomitant]
     Active Substance: RABEPRAZOLE SODIUM
     Dosage: UNK UKN, UNK

REACTIONS (7)
  - Joint instability [Unknown]
  - Hepatic function abnormal [Unknown]
  - Rash [Unknown]
  - Hepatic enzyme increased [Unknown]
  - Depression [Unknown]
  - Erectile dysfunction [Unknown]
  - Fatigue [Unknown]
